FAERS Safety Report 7411050-5 (Version None)
Quarter: 2011Q2

REPORT INFORMATION
  Report Type: 
  Country: None (occurrence: None)
  Receive Date: 20110413
  Receipt Date: 20110405
  Transmission Date: 20111010
  Serious: Yes (Hospitalization)
  Sender: FDA-Public Use
  Company Number: US-JNJFOC-20110306587

PATIENT
  Sex: Female
  Weight: 91.63 kg

DRUGS (13)
  1. SIMPONI [Suspect]
     Indication: IMMUNE SYSTEM DISORDER
     Route: 058
  2. LORAZEPAM [Concomitant]
     Indication: ANXIETY
     Route: 048
  3. PHENERGAN HCL [Concomitant]
     Indication: NAUSEA
     Route: 048
  4. DIAZEPAM [Concomitant]
     Indication: ANXIETY
     Route: 048
  5. HYDROCHLOROTHIAZIDE [Concomitant]
     Indication: HYPERTENSION
     Route: 048
  6. SINGULAIR [Concomitant]
     Indication: ASTHMA
     Route: 048
  7. LISINOPRIL [Concomitant]
     Indication: HYPERTENSION
     Route: 048
  8. CYMBALTA [Concomitant]
     Indication: DEPRESSION
     Route: 048
  9. SEROQUEL [Concomitant]
     Indication: DEPRESSION
     Route: 048
  10. METHOTREXATE [Concomitant]
     Indication: RHEUMATOID ARTHRITIS
     Route: 048
  11. NEURONTIN [Concomitant]
     Indication: PAIN
     Route: 048
  12. ZOFRAN [Concomitant]
     Indication: NAUSEA
     Route: 048
  13. HYDROXYCHLOROQUINE SULFATE [Concomitant]
     Indication: IMMUNE SYSTEM DISORDER
     Route: 048

REACTIONS (1)
  - MENINGITIS VIRAL [None]
